FAERS Safety Report 12172253 (Version 4)
Quarter: 2016Q4

REPORT INFORMATION
  Report Type: Spontaneous
  Country: GB (occurrence: GB)
  Receive Date: 20160311
  Receipt Date: 20161202
  Transmission Date: 20170207
  Serious: Yes (Other)
  Sender: FDA-Public Use
  Company Number: GB-ABBVIE-16P-167-1581130-00

PATIENT
  Sex: Female

DRUGS (5)
  1. UTROGESTAN [Concomitant]
     Active Substance: PROGESTERONE
     Indication: PRODUCT USED FOR UNKNOWN INDICATION
     Dosage: UNK
  2. ESTRADIOL. [Concomitant]
     Active Substance: ESTRADIOL
     Indication: PRODUCT USED FOR UNKNOWN INDICATION
     Dosage: UNK
  3. PROSTAP SR [Suspect]
     Active Substance: LEUPROLIDE ACETATE
     Indication: ENDOMETRIOSIS
     Dosage: 3.75 MG, UNK
     Route: 065
     Dates: start: 200912, end: 201602
  4. TESTIM [Concomitant]
     Active Substance: TESTOSTERONE
     Indication: PRODUCT USED FOR UNKNOWN INDICATION
     Dosage: UNK
  5. KLIOVANCE [Concomitant]
     Active Substance: ESTRADIOL\NORETHINDRONE ACETATE
     Indication: PRODUCT USED FOR UNKNOWN INDICATION
     Dosage: UNK

REACTIONS (52)
  - Tachycardia [Unknown]
  - Fatigue [Unknown]
  - Blood oestrogen decreased [Recovering/Resolving]
  - Syncope [Unknown]
  - Asthenia [Unknown]
  - Agitation [Unknown]
  - Hot flush [Unknown]
  - Arthralgia [Unknown]
  - Nausea [Unknown]
  - Disorganised speech [Unknown]
  - Panic attack [Unknown]
  - Bone density increased [Unknown]
  - Depression [Unknown]
  - Nausea [Unknown]
  - Off label use [Unknown]
  - Heart rate increased [Unknown]
  - Amnesia [Unknown]
  - Cardiac disorder [Unknown]
  - Vision blurred [Unknown]
  - Confusional state [Unknown]
  - Diarrhoea [Unknown]
  - Syncope [Unknown]
  - Cognitive disorder [Unknown]
  - Panic attack [Unknown]
  - Bradycardia [Unknown]
  - Feeling abnormal [Unknown]
  - Impaired reasoning [Unknown]
  - Back pain [Unknown]
  - Diplopia [Unknown]
  - Myalgia [Unknown]
  - Headache [Unknown]
  - Abnormal sleep-related event [Unknown]
  - Palpitations [Unknown]
  - Tachycardia [Unknown]
  - Dizziness [Unknown]
  - Disturbance in attention [Unknown]
  - Vaginal infection [Unknown]
  - Myoclonus [Unknown]
  - Sleep disorder [Unknown]
  - Memory impairment [Unknown]
  - Quality of life decreased [Unknown]
  - Anxiety [Unknown]
  - Visual acuity reduced [Unknown]
  - Arthralgia [Unknown]
  - Hyperhidrosis [Unknown]
  - Seizure [Unknown]
  - Insomnia [Unknown]
  - Fatigue [Unknown]
  - Depressed mood [Unknown]
  - Sleep disorder [Unknown]
  - Nausea [Unknown]
  - Hyperhidrosis [Unknown]

NARRATIVE: CASE EVENT DATE: 2011
